FAERS Safety Report 6572735-6 (Version None)
Quarter: 2010Q1

REPORT INFORMATION
  Report Type: 
  Country: None (occurrence: None)
  Receive Date: 20100205
  Receipt Date: 20100126
  Transmission Date: 20100710
  Serious: Yes (Other)
  Sender: FDA-Public Use
  Company Number: PHEH2010US00659

PATIENT
  Sex: Female

DRUGS (5)
  1. RECLAST [Suspect]
     Indication: OSTEOPOROSIS
     Dosage: UNK
     Route: 042
     Dates: start: 20090615
  2. METHOTREXATE [Concomitant]
     Indication: RHEUMATOID ARTHRITIS
     Dosage: 10 MG, QW
     Route: 048
     Dates: start: 20020101
  3. FOLIC ACID [Concomitant]
     Indication: SUPPLEMENTATION THERAPY
     Dosage: 1 MG, QD
     Route: 048
     Dates: start: 20020101
  4. CALCIUM [Concomitant]
     Indication: OSTEOPOROSIS
     Dosage: 1200 MG, QD
     Route: 048
     Dates: start: 20020101
  5. VITAMIN D [Concomitant]
     Dosage: 50000 IU, QW
     Route: 048

REACTIONS (2)
  - DEAFNESS UNILATERAL [None]
  - EAR DISORDER [None]
